FAERS Safety Report 11245030 (Version 1)
Quarter: 2015Q3

REPORT INFORMATION
  Report Type: Spontaneous
  Country: US (occurrence: US)
  Receive Date: 20150707
  Receipt Date: 20150707
  Transmission Date: 20151125
  Serious: No
  Sender: FDA-Public Use
  Company Number: US-BAYER-2015-368212

PATIENT
  Age: 8 Year
  Sex: Female
  Weight: 43.99 kg

DRUGS (2)
  1. CLARITIN [Suspect]
     Active Substance: LORATADINE
     Dosage: UNK
     Route: 048
     Dates: start: 2015
  2. CLARITIN [Suspect]
     Active Substance: LORATADINE
     Dosage: 2 DF, ONCE
     Route: 048
     Dates: start: 20150628, end: 20150628

REACTIONS (1)
  - Product use issue [None]

NARRATIVE: CASE EVENT DATE: 20150628
